FAERS Safety Report 6940508-8 (Version None)
Quarter: 2010Q3

REPORT INFORMATION
  Report Type: 
  Country: None (occurrence: None)
  Receive Date: 20100825
  Receipt Date: 20100818
  Transmission Date: 20110219
  Serious: Yes (Hospitalization)
  Sender: FDA-Public Use
  Company Number: US-BAYER-201019239BCC

PATIENT
  Age: 67 Year
  Sex: Male
  Weight: 104 kg

DRUGS (12)
  1. ALEVE (CAPLET) [Suspect]
     Indication: ARTHRALGIA
     Dosage: TOTAL DAILY DOSE: 440 MG  UNIT DOSE: 220 MG
     Route: 048
     Dates: end: 20090101
  2. UNKNOWN DRUG [Concomitant]
     Indication: ANTICOAGULANT THERAPY
  3. SIMVASTATIN [Concomitant]
     Route: 065
  4. CLINDAMYCIN [Concomitant]
     Route: 065
  5. AMIODARONE [Concomitant]
     Route: 065
  6. TIMOLOL MALEATE [Concomitant]
     Route: 065
  7. METOPROLOL [Concomitant]
     Route: 065
  8. ZOLOFT [Concomitant]
     Route: 065
  9. FUROSEMIDE [Concomitant]
     Route: 065
  10. GLIPIZIDE [Concomitant]
     Route: 065
  11. NEXIUM [Concomitant]
     Route: 065
  12. ACTOS [Concomitant]
     Route: 065

REACTIONS (4)
  - ABDOMINAL DISCOMFORT [None]
  - CARDIOVASCULAR DISORDER [None]
  - CONTUSION [None]
  - ULCER HAEMORRHAGE [None]
